FAERS Safety Report 5104028-8 (Version None)
Quarter: 2006Q3

REPORT INFORMATION
  Report Type: 
  Country: None (occurrence: None)
  Receive Date: 20060911
  Receipt Date: 20060830
  Transmission Date: 20061208
  Serious: Yes (Hospitalization)
  Sender: FDA-Public Use
  Company Number: 2006105108

PATIENT
  Sex: Female

DRUGS (1)
  1. SULPERAZONE               (SULBACTAM, CEFOPERAZONE) [Suspect]
     Indication: INFECTION PROPHYLAXIS
     Dosage: 4.5 GRAM (1.5 GRAM, 3 IN 1 D), INTRAVENOUS
     Route: 042
     Dates: start: 20060806, end: 20060817

REACTIONS (2)
  - DRUG INEFFECTIVE [None]
  - WOUND INFECTION STAPHYLOCOCCAL [None]
